FAERS Safety Report 22220193 (Version 1)
Quarter: 2023Q2

REPORT INFORMATION
  Report Type: Report from Study
  Country: US (occurrence: US)
  Receive Date: 20230417
  Receipt Date: 20230417
  Transmission Date: 20230721
  Serious: Yes (Hospitalization, Other)
  Sender: FDA-Public Use
  Company Number: US-002147023-NVSC2023US070660

PATIENT
  Age: 62 Year
  Sex: Female
  Weight: 81.5 kg

DRUGS (32)
  1. ILARIS [Suspect]
     Active Substance: CANAKINUMAB
     Indication: Pancreatic carcinoma metastatic
     Dosage: 250 MG, Q4W, CANAKINUMAB, 250 MG
     Route: 058
     Dates: start: 20230223
  2. SPARTALIZUMAB [Suspect]
     Active Substance: SPARTALIZUMAB
     Indication: Pancreatic carcinoma metastatic
     Dosage: 400 MG, Q4W, INFUSION
     Route: 042
     Dates: start: 20230223
  3. GEMCITABINE [Suspect]
     Active Substance: GEMCITABINE
     Indication: Pancreatic carcinoma metastatic
     Dosage: 1552 MG, Q3W
     Route: 042
     Dates: start: 20230223
  4. GEMCITABINE [Suspect]
     Active Substance: GEMCITABINE
     Dosage: 1552 MG, Q3W
     Route: 042
     Dates: start: 20230307
  5. GABA [Concomitant]
     Active Substance: HOMEOPATHICS
     Indication: Product used for unknown indication
     Dosage: UNK
     Route: 065
  6. ELIQUIS [Concomitant]
     Active Substance: APIXABAN
     Indication: Splenic vein thrombosis
     Dosage: UNK, BID, SUBJECT ADMITTED ON 09 JAN 2023
     Route: 048
     Dates: start: 20230109
  7. ELIQUIS [Concomitant]
     Active Substance: APIXABAN
     Indication: Thrombosis prophylaxis
     Dosage: UNK
     Route: 065
     Dates: start: 20230118
  8. COLCHICINE [Concomitant]
     Active Substance: COLCHICINE
     Indication: Product used for unknown indication
     Dosage: 1 DOSAGE FORM, BID, NIGHTLY AT BEDTIME
     Route: 065
     Dates: start: 20191211
  9. LEXAPRO [Concomitant]
     Active Substance: ESCITALOPRAM OXALATE
     Indication: Product used for unknown indication
     Dosage: 1 DOSAGE FORM, QD, EVERY MORNING
     Route: 048
     Dates: start: 20191125
  10. ESTRACE [Concomitant]
     Active Substance: ESTRADIOL
     Indication: Product used for unknown indication
     Dosage: 1 DOSAGE FORM, QD
     Route: 048
     Dates: start: 20191112
  11. LUNESTA [Concomitant]
     Active Substance: ESZOPICLONE
     Indication: Product used for unknown indication
     Dosage: 2 MG, NIGHTLY AS NEEDED
     Route: 048
     Dates: start: 20210525
  12. ZARXIO [Concomitant]
     Active Substance: FILGRASTIM-SNDZ
     Indication: Product used for unknown indication
     Dosage: INJECT 480 MCG (0.8ML) UNDER THE SKIN ONCE A DAY FOR  3 DAYS STARTING ON THE DAY AFTER EACH CHEMO IN
     Route: 065
  13. ENULOSE [Concomitant]
     Active Substance: LACTULOSE
     Indication: Constipation
     Dosage: 1 DOSAGE FORM, TID, AS NEEDED
     Route: 048
  14. CREON [Concomitant]
     Active Substance: PANCRELIPASE AMYLASE\PANCRELIPASE LIPASE\PANCRELIPASE PROTEASE
     Indication: Product used for unknown indication
     Dosage: 2 DOSAGE FORM, 2 CAPS WITH MEALS, TAKE 1 CAP WITH SNACKS 36,000-114,000- 180,000 UNIT  CAPSULE
     Route: 065
     Dates: start: 20230131
  15. ATIVAN [Concomitant]
     Active Substance: LORAZEPAM
     Indication: Anxiety
     Dosage: TAKE 1-2 TABLETS (1-2 MG TOTAL) BY MOUTH EVERY 6 (SIX) HOURS AS NEEDED
     Route: 065
  16. MELATONIN [Concomitant]
     Active Substance: MELATONIN
     Indication: Product used for unknown indication
     Dosage: TOOK 3-6 MG BY MOUTH NIGHTLY AT BEDTIME
     Route: 048
  17. DOLOPHINE [Concomitant]
     Active Substance: METHADONE HYDROCHLORIDE
     Indication: Product used for unknown indication
     Dosage: 2 DOSAGE FORM, TID, MORNING, AFTERNOON AND EVENING
     Route: 048
  18. NALOXONE [Concomitant]
     Active Substance: NALOXONE
     Indication: Product used for unknown indication
     Dosage: UNK
     Route: 065
     Dates: start: 20230111
  19. ZOFRAN [Concomitant]
     Active Substance: ONDANSETRON HYDROCHLORIDE
     Indication: Product used for unknown indication
     Dosage: 1 DOSAGE FORM, Q8H, AS NEEDED, USED FOR PREVIOUS NAUSEA
     Route: 048
     Dates: start: 20230111
  20. ROXICODONE [Concomitant]
     Active Substance: OXYCODONE HYDROCHLORIDE
     Indication: Pain
     Dosage: TAKE 1-2 TABLETS (10-20 MG TOTAL), Q4H
     Route: 048
  21. PHENERGAN [Concomitant]
     Active Substance: PROMETHAZINE HYDROCHLORIDE
     Indication: Product used for unknown indication
     Dosage: 1 DOSAGE FORM, BID, ONE IN MORNING AND OTHER AT NIGHT
     Route: 054
  22. SENOKOT [Concomitant]
     Active Substance: SENNOSIDES
     Indication: Product used for unknown indication
     Dosage: TAKE 17.2 MG, QD
     Route: 048
  23. SIMETHICONE (DIMETHICONE) [Concomitant]
     Active Substance: DIMETHICONE
     Indication: Product used for unknown indication
     Dosage: 1 DOSAGE FORM, 4 TIMES A DAY, MORNING, NOON EVENING AND BEDTIME
     Route: 048
  24. SIMETHICONE (DIMETHICONE) [Concomitant]
     Active Substance: DIMETHICONE
     Dosage: UNK, EVERY 6 (SIX) HOURS AS NEEDED
     Route: 048
  25. ARMOUR THYROID [Concomitant]
     Active Substance: THYROID, PORCINE
     Indication: Product used for unknown indication
     Dosage: 1 DOSAGE FORM, QD, DAILY IN MORNING
     Route: 065
     Dates: start: 20191211
  26. XANAX [Concomitant]
     Active Substance: ALPRAZOLAM
     Indication: Product used for unknown indication
     Dosage: 0.5 MG, QD
     Route: 048
     Dates: start: 20210713
  27. HERBALS [Concomitant]
     Active Substance: HERBALS
     Indication: Product used for unknown indication
     Dosage: 1000 MG, BID, MOUTH IN THE MORNING AND AT BEDTIME
     Route: 048
  28. NORCO [Concomitant]
     Active Substance: ACETAMINOPHEN\HYDROCODONE BITARTRATE
     Indication: Pain
     Dosage: TAKE 1-2 TABLETS, Q4H (10-325 MG) AS NEEDED
     Route: 048
     Dates: start: 20230109
  29. MILK OF MAGNESIA [Concomitant]
     Active Substance: MAGNESIUM HYDROXIDE
     Indication: Product used for unknown indication
     Dosage: UNK
     Route: 048
  30. VEETIDS [Concomitant]
     Active Substance: PENICILLIN V POTASSIUM
     Indication: Product used for unknown indication
     Dosage: 1 DOSAGE FORM, BID, FOR 10 DAYS
     Route: 048
  31. MIRALAX [Concomitant]
     Active Substance: POLYETHYLENE GLYCOL 3350
     Indication: Product used for unknown indication
     Dosage: 17 G POWDER, QD, 17 GRAM/DOSE POWDER
     Route: 048
  32. PERI-COLACE [Concomitant]
     Active Substance: CASANTHRANOL\DOCUSATE SODIUM
     Indication: Product used for unknown indication
     Dosage: 2 DOSAGE FORM, QD, 8.6-50 MG
     Route: 048

REACTIONS (13)
  - Leukocytosis [Unknown]
  - Anorectal discomfort [Unknown]
  - Abnormal faeces [Unknown]
  - Haematochezia [Unknown]
  - Haemorrhoids [Unknown]
  - Night sweats [Unknown]
  - Pharyngitis streptococcal [Unknown]
  - Oropharyngeal pain [Recovering/Resolving]
  - Seizure [Unknown]
  - Abdominal pain lower [Unknown]
  - Nausea [Unknown]
  - Vomiting [Unknown]
  - Constipation [Recovered/Resolved]

NARRATIVE: CASE EVENT DATE: 20230305
